FAERS Safety Report 14205543 (Version 2)
Quarter: 2018Q1

REPORT INFORMATION
  Report Type: Spontaneous
  Country: DE (occurrence: DE)
  Receive Date: 20171120
  Receipt Date: 20180112
  Transmission Date: 20180508
  Serious: Yes (Hospitalization)
  Sender: FDA-Public Use
  Company Number: PHHY2017DE169284

PATIENT
  Age: 54 Year
  Sex: Female

DRUGS (3)
  1. L-THYROX [Concomitant]
     Active Substance: LEVOTHYROXINE SODIUM
     Indication: HYPOTHYROIDISM
     Dosage: 75 UG, QD
     Route: 048
  2. GILENYA [Suspect]
     Active Substance: FINGOLIMOD HYDROCHLORIDE
     Dosage: 0.5 MG, QD
     Route: 048
     Dates: start: 20170818
  3. GILENYA [Suspect]
     Active Substance: FINGOLIMOD HYDROCHLORIDE
     Indication: RELAPSING-REMITTING MULTIPLE SCLEROSIS
     Dosage: 0.5 MG, QD
     Route: 048
     Dates: start: 201211, end: 20170111

REACTIONS (10)
  - Multiple sclerosis relapse [Recovered/Resolved]
  - Ataxia [Recovered/Resolved]
  - Chest discomfort [Unknown]
  - Muscle spasticity [Recovered/Resolved]
  - Paresis [Recovered/Resolved]
  - Tachycardia [Recovering/Resolving]
  - Dizziness [Unknown]
  - Hypoaesthesia [Recovered/Resolved]
  - Atrial fibrillation [Recovered/Resolved]
  - Palpitations [Unknown]

NARRATIVE: CASE EVENT DATE: 201607
